FAERS Safety Report 13089171 (Version 1)
Quarter: 2017Q1

REPORT INFORMATION
  Report Type: Report from Study
  Country: None (occurrence: NZ)
  Receive Date: 20170105
  Receipt Date: 20170105
  Transmission Date: 20170428
  Serious: Yes (Hospitalization, Other)
  Sender: FDA-Public Use
  Company Number: NZ-ABBVIE-17P-118-1827185-00

PATIENT
  Sex: Female

DRUGS (1)
  1. HUMIRA [Suspect]
     Active Substance: ADALIMUMAB
     Indication: ANKYLOSING SPONDYLITIS
     Route: 058

REACTIONS (6)
  - Malaise [Unknown]
  - Cardiac failure [Unknown]
  - Fluid overload [Unknown]
  - Dyspnoea [Recovering/Resolving]
  - Weight decreased [Unknown]
  - Infusion site cellulitis [Unknown]
